FAERS Safety Report 19954718 (Version 4)
Quarter: 2022Q1

REPORT INFORMATION
  Report Type: Spontaneous
  Country: US (occurrence: US)
  Receive Date: 20211014
  Receipt Date: 20220113
  Transmission Date: 20220424
  Serious: Yes (Other)
  Sender: FDA-Public Use
  Company Number: US-PFIZER INC-202101332799

PATIENT
  Age: 62 Year
  Sex: Female

DRUGS (1)
  1. IBRANCE [Suspect]
     Active Substance: PALBOCICLIB
     Indication: Breast cancer female
     Dosage: 125 MG
     Dates: start: 20210825

REACTIONS (8)
  - Urinary tract infection [Unknown]
  - Fatigue [Unknown]
  - Hypersomnia [Unknown]
  - Yellow skin [Recovered/Resolved]
  - Weight decreased [Unknown]
  - Dry skin [Unknown]
  - Alopecia [Unknown]
  - Nerve injury [Unknown]

NARRATIVE: CASE EVENT DATE: 20210101
